FAERS Safety Report 14967132 (Version 1)
Quarter: 2018Q2

REPORT INFORMATION
  Report Type: Spontaneous
  Country: JP (occurrence: JP)
  Receive Date: 20180604
  Receipt Date: 20180604
  Transmission Date: 20180711
  Serious: Yes (Other)
  Sender: FDA-Public Use
  Company Number: JP-CHEPLA-C20180215

PATIENT
  Age: 72 Year
  Sex: Male
  Weight: 50 kg

DRUGS (11)
  1. GRANISETRON [Concomitant]
     Active Substance: GRANISETRON
  2. IDAMYCIN [Suspect]
     Active Substance: IDARUBICIN HYDROCHLORIDE
     Indication: ACUTE PROMYELOCYTIC LEUKAEMIA
     Route: 041
     Dates: start: 20170705, end: 20170706
  3. VESANOID [Suspect]
     Active Substance: TRETINOIN
     Indication: ACUTE PROMYELOCYTIC LEUKAEMIA
     Dosage: 7 CAPSULES PER DAY
     Route: 048
     Dates: start: 20170705, end: 20170902
  4. PREDNISOLONE. [Concomitant]
     Active Substance: PREDNISOLONE
  5. SOLU-CORTE F [Concomitant]
  6. FEBURIC TABLETS [Concomitant]
     Active Substance: FEBUXOSTAT
  7. VFEND TABLETS [Concomitant]
  8. NEXIUM [Concomitant]
     Active Substance: ESOMEPRAZOLE MAGNESIUM
  9. LYRICA CAPSULES [Concomitant]
  10. MAGNESIUM OXIDE. [Concomitant]
     Active Substance: MAGNESIUM OXIDE
  11. CYLOCIDE [Suspect]
     Active Substance: CYTARABINE
     Indication: ACUTE PROMYELOCYTIC LEUKAEMIA
     Route: 041
     Dates: start: 20170705, end: 20170709

REACTIONS (1)
  - Pancytopenia [Recovered/Resolved]

NARRATIVE: CASE EVENT DATE: 20170710
